FAERS Safety Report 8457888-7 (Version None)
Quarter: 2012Q2

REPORT INFORMATION
  Report Type: 
  Country: None (occurrence: None)
  Receive Date: 20120323
  Receipt Date: 20111125
  Transmission Date: 20120825
  Serious: Yes (Other)
  Sender: FDA-Public Use
  Company Number: 163-21880-11100806

PATIENT
  Age: 54 Year
  Sex: Female
  Weight: 63.5036 kg

DRUGS (10)
  1. REVLIMID [Suspect]
     Indication: MULTIPLE MYELOMA
     Dosage: 25 MG, DAILY X 21 DAYS, PO
     Route: 048
     Dates: start: 20070317
  2. ABILIFY (ARIPIPPRAZOLE) [Concomitant]
  3. BIAXIN [Concomitant]
  4. ASPIRIN [Concomitant]
  5. CITALOPRAM HYDROBROMIDE [Concomitant]
  6. DEXAMETHASONE [Concomitant]
  7. ALPRAZOLAM [Concomitant]
  8. NEXIUM [Concomitant]
  9. MULTIVITAMIN [Concomitant]
  10. CALCIUM WITH VITAMIN D (CALCIUM WITH VITAMIN D) [Concomitant]

REACTIONS (1)
  - HAEMORRHOIDAL HAEMORRHAGE [None]
